FAERS Safety Report 7358626-1 (Version None)
Quarter: 2011Q1

REPORT INFORMATION
  Report Type: 
  Country: None (occurrence: None)
  Receive Date: 20110310
  Receipt Date: 20110301
  Transmission Date: 20110831
  Serious: Yes (Hospitalization)
  Sender: FDA-Public Use
  Company Number: 844365

PATIENT
  Age: 38 Year
  Sex: Female

DRUGS (1)
  1. MORPHINE SULFATE [Suspect]
     Indication: BONE PAIN
     Dosage: 10 MG/DAY, INTRATHECAL
     Route: 037

REACTIONS (3)
  - DEVICE MISUSE [None]
  - GRANULOMA [None]
  - SUBSTANCE ABUSE [None]
